FAERS Safety Report 7441079-2 (Version None)
Quarter: 2011Q2

REPORT INFORMATION
  Report Type: 
  Country: None (occurrence: None)
  Receive Date: 20110427
  Receipt Date: 20110412
  Transmission Date: 20111010
  Serious: Yes (Other)
  Sender: FDA-Public Use
  Company Number: MX-ABBOTT-11P-107-0721652-00

PATIENT

DRUGS (1)
  1. SEVOFLURANE [Suspect]
     Indication: PRODUCT USED FOR UNKNOWN INDICATION

REACTIONS (5)
  - HYPOTENSION [None]
  - DELAYED RECOVERY FROM ANAESTHESIA [None]
  - HYPERTENSION [None]
  - ANAESTHETIC COMPLICATION [None]
  - EXPIRED DRUG ADMINISTERED [None]
